FAERS Safety Report 8103616-4 (Version None)
Quarter: 2012Q1

REPORT INFORMATION
  Report Type: 
  Country: None (occurrence: None)
  Receive Date: 20120201
  Receipt Date: 20120124
  Transmission Date: 20120608
  Serious: Yes (Other)
  Sender: FDA-Public Use
  Company Number: BR-PFIZER INC-2009246135

PATIENT
  Age: 2 Year
  Sex: Female
  Weight: 10.2 kg

DRUGS (4)
  1. XALATAN [Suspect]
     Indication: INTRAOCULAR PRESSURE INCREASED
     Dosage: ONE DROP TWICE DAILY IN RIGHT EYE
     Dates: start: 20120124
  2. COSOPT [Concomitant]
     Dosage: UNK
     Dates: end: 20120124
  3. PRED FORTE [Concomitant]
     Dosage: UNK
  4. XALATAN [Suspect]
     Indication: GLAUCOMA
     Dosage: UNK
     Route: 047
     Dates: start: 20090301

REACTIONS (6)
  - VISUAL ACUITY REDUCED [None]
  - EYE DISORDER [None]
  - VISION BLURRED [None]
  - SURGERY [None]
  - INTRAOCULAR PRESSURE INCREASED [None]
  - DRUG INEFFECTIVE [None]
